FAERS Safety Report 20262811 (Version 1)
Quarter: 2021Q4

REPORT INFORMATION
  Report Type: Spontaneous
  Country: FR (occurrence: FR)
  Receive Date: 20211231
  Receipt Date: 20211231
  Transmission Date: 20220303
  Serious: Yes (Hospitalization)
  Sender: FDA-Public Use
  Company Number: None

PATIENT
  Age: 84 Year
  Sex: Male
  Weight: 63 kg

DRUGS (12)
  1. PACLITAXEL [Suspect]
     Active Substance: PACLITAXEL
     Indication: Bronchial carcinoma
     Dosage: 80MG/M2
     Route: 041
     Dates: start: 20210813, end: 20211006
  2. CARBOPLATIN [Suspect]
     Active Substance: CARBOPLATIN
     Indication: Bronchial carcinoma
     Dosage: 390MG C1J1,UNIT DOSE:390MILLIGRAM?340MG C2J1?250MG C3J1
     Route: 041
     Dates: start: 20210813, end: 20210930
  3. POTASSIUM CHLORIDE [Concomitant]
     Active Substance: POTASSIUM CHLORIDE
     Dosage: DIFFU K, CAPSULE
  4. LATANOPROST [Concomitant]
     Active Substance: LATANOPROST
     Dosage: MONOPROST 50 MICROGRAMS / ML, EYE DROPS, SOLUTION IN SINGLE-DOSE CONTAINER
  5. ASPIRIN [Concomitant]
     Active Substance: ASPIRIN
     Dosage: ASPIRINE UPSA 100 MG, EFFERVESCENT POWDER FOR ORAL SOLUTION IN SACHET
  6. LOVENOX [Concomitant]
     Active Substance: ENOXAPARIN SODIUM
     Dosage: LOVENOX 4000 IU ANTI-XA / 0.4 ML, SOLUTION FOR INJECTION IN PRE-FILLED SYRINGE
  7. RAMIPRIL [Concomitant]
     Active Substance: RAMIPRIL
     Dosage: RAMIPRIL MYLAN 1.25 MG TABLETS
  8. FUROSEMIDE [Concomitant]
     Active Substance: FUROSEMIDE
     Dosage: FUROSEMIDE RENAUDIN 20 MG / 2 ML, SOLUTION FOR INJECTION (IM-IV)
  9. METFORMIN HYDROCHLORIDE [Concomitant]
     Active Substance: METFORMIN HYDROCHLORIDE
     Dosage: METFORMIN ARROW 500 MG FILM-COATED TABLETS
  10. BISOPROLOL [Concomitant]
     Active Substance: BISOPROLOL
     Dosage: BISOPROLOL QUIVER 1.25 MG TABLET
  11. LANSOPRAZOLE [Concomitant]
     Active Substance: LANSOPRAZOLE
     Dosage: LANSOPRAZOLE 30 MG GASTRO-RESISTANT CAPSULES
  12. ATORVASTATIN [Concomitant]
     Active Substance: ATORVASTATIN
     Dosage: ATORVASTATIN 10 MG FILM-COATED TABLETS

REACTIONS (2)
  - Congestive cardiomyopathy [Recovering/Resolving]
  - Cardiac failure [Recovering/Resolving]

NARRATIVE: CASE EVENT DATE: 20211103
